FAERS Safety Report 7637971-6 (Version None)
Quarter: 2011Q3

REPORT INFORMATION
  Report Type: 
  Country: None (occurrence: None)
  Receive Date: 20110720
  Receipt Date: 20110628
  Transmission Date: 20111222
  Serious: Yes (Hospitalization)
  Sender: FDA-Public Use
  Company Number: 2011PROUSA00441

PATIENT
  Age: 81 Year
  Sex: Male

DRUGS (2)
  1. PROVENGE [Suspect]
     Indication: PROSTATE CANCER METASTATIC
     Dosage: 250 ML, SINGLE, INTRAVENOUS
     Route: 042
     Dates: start: 20110627, end: 20110627
  2. PROVENGE [Suspect]
     Indication: PROSTATE CANCER METASTATIC
     Dosage: 250 ML, SINGLE, INTRAVENOUS
     Route: 042
     Dates: start: 20110613, end: 20110613

REACTIONS (9)
  - ABDOMINAL DISCOMFORT [None]
  - HYPERTENSION [None]
  - HYPOXIA [None]
  - NAUSEA [None]
  - DELUSION [None]
  - PYREXIA [None]
  - VOMITING [None]
  - BACK PAIN [None]
  - CHILLS [None]
